FAERS Safety Report 25054966 (Version 2)
Quarter: 2025Q1

REPORT INFORMATION
  Report Type: Report from Study
  Country: US (occurrence: US)
  Receive Date: 20250308
  Receipt Date: 20250321
  Transmission Date: 20250408
  Serious: Yes (Hospitalization, Disabling, Other)
  Sender: ABBVIE
  Company Number: US-ABBVIE-6161415

PATIENT
  Age: 65 Year
  Sex: Female
  Weight: 90.718 kg

DRUGS (3)
  1. HUMIRA [Suspect]
     Active Substance: ADALIMUMAB
     Indication: Psoriasis
     Dosage: HUMIRA CITRATE FREE PEN, FORM STRENGTH: 40 MILLIGRAM
     Route: 058
     Dates: start: 2017, end: 202310
  2. HUMIRA [Suspect]
     Active Substance: ADALIMUMAB
     Indication: Psoriatic arthropathy
  3. TRIAMCINOLONE [Concomitant]
     Active Substance: TRIAMCINOLONE
     Indication: Psoriasis

REACTIONS (6)
  - Illness [Unknown]
  - Diffuse large B-cell lymphoma [Recovered/Resolved]
  - Localised infection [Recovering/Resolving]
  - Macular degeneration [Not Recovered/Not Resolved]
  - Knee arthroplasty [Recovering/Resolving]
  - Psoriasis [Recovering/Resolving]

NARRATIVE: CASE EVENT DATE: 20220101
